FAERS Safety Report 25801910 (Version 1)
Quarter: 2025Q3

REPORT INFORMATION
  Report Type: Spontaneous
  Country: CA (occurrence: CA)
  Receive Date: 20250915
  Receipt Date: 20250915
  Transmission Date: 20251021
  Serious: Yes (Other)
  Sender: ACCORD
  Company Number: None

PATIENT

DRUGS (1)
  1. MITOMYCIN [Suspect]
     Active Substance: MITOMYCIN
     Indication: Product used for unknown indication

REACTIONS (4)
  - Eyelid ptosis [Unknown]
  - Incorrect route of product administration [Unknown]
  - Ophthalmoplegia [Unknown]
  - Disorder of orbit [Unknown]
